FAERS Safety Report 10692981 (Version 2)
Quarter: 2015Q1

REPORT INFORMATION
  Report Type: Spontaneous
  Country: US (occurrence: US)
  Receive Date: 20150106
  Receipt Date: 20150127
  Transmission Date: 20150720
  Serious: Yes (Death)
  Sender: FDA-Public Use
  Company Number: US-009507513-1412USA013689

PATIENT
  Sex: Female

DRUGS (1)
  1. DR. SCHOLLS EXTRA THICK CALLUS REMOVERS [Suspect]
     Active Substance: SALICYLIC ACID
     Indication: PRODUCT USED FOR UNKNOWN INDICATION
     Dosage: UNK, UNKNOWN
     Route: 061

REACTIONS (3)
  - Drug ineffective [Unknown]
  - Death [Fatal]
  - Expired product administered [Unknown]

NARRATIVE: CASE EVENT DATE: 201412
